FAERS Safety Report 23491140 (Version 1)
Quarter: 2024Q1

REPORT INFORMATION
  Report Type: Spontaneous
  Country: ES (occurrence: ES)
  Receive Date: 20240207
  Receipt Date: 20240207
  Transmission Date: 20240410
  Serious: Yes (Hospitalization, Other)
  Sender: FDA-Public Use
  Company Number: ES-MLMSERVICE-20240126-4792201-1

PATIENT
  Age: 41 Year
  Sex: Male

DRUGS (5)
  1. FOLIC ACID [Concomitant]
     Active Substance: FOLIC ACID
  2. VALPROIC ACID [Suspect]
     Active Substance: VALPROIC ACID
  3. LACOSAMIDE [Suspect]
     Active Substance: LACOSAMIDE
  4. CLOBAZAM [Concomitant]
     Active Substance: CLOBAZAM
  5. PANTOPRAZOLE [Suspect]
     Active Substance: PANTOPRAZOLE

REACTIONS (2)
  - Pancreatitis acute [Recovering/Resolving]
  - Type IV hypersensitivity reaction [Recovering/Resolving]
